FAERS Safety Report 8926952 (Version 2)
Quarter: 2012Q4

REPORT INFORMATION
  Report Type: 
  Country: JP (occurrence: JP)
  Receive Date: 20121127
  Receipt Date: 20121207
  Transmission Date: 20130627
  Serious: Yes (Hospitalization)
  Sender: FDA-Public Use
  Company Number: JP-NOVOPROD-364508

PATIENT
  Age: 56 Year
  Sex: Male
  Weight: 73 kg

DRUGS (8)
  1. VICTOZA HIKACHU INJECTION [Suspect]
     Indication: TYPE 2 DIABETES MELLITUS
     Dosage: 0.9 mg, single
     Route: 058
     Dates: start: 20120111, end: 2012
  2. METGLUCO [Concomitant]
     Indication: TYPE 2 DIABETES MELLITUS
     Dosage: 750 mg, qd
     Route: 048
  3. AMARYL [Concomitant]
     Indication: TYPE 2 DIABETES MELLITUS
     Dosage: 0.5 mg, qd
     Route: 048
  4. BAYASPIRIN [Concomitant]
     Indication: ANGINA PECTORIS
     Dosage: 100 mg, qd
     Route: 048
  5. PLAVIX [Concomitant]
     Indication: ANGINA PECTORIS
     Dosage: 75 mg, qd
     Route: 048
  6. TAKEPRON [Concomitant]
     Indication: ANGINA PECTORIS
     Dosage: 15 mg, qd
     Route: 048
  7. LIPITOR [Concomitant]
     Indication: HYPERLIPIDAEMIA
     Dosage: 10 mg, qd
     Route: 048
  8. LOXOPROFEN [Concomitant]
     Indication: SPINAL OSTEOARTHRITIS
     Dosage: 120 mg, qd
     Route: 048

REACTIONS (1)
  - Intestinal obstruction [Recovering/Resolving]
